FAERS Safety Report 4586837-7 (Version None)
Quarter: 2005Q1

REPORT INFORMATION
  Report Type: 
  Country: None (occurrence: None)
  Receive Date: 20050215
  Receipt Date: 20050207
  Transmission Date: 20050727
  Serious: Yes (Other)
  Sender: FDA-Public Use
  Company Number: 2005026989

PATIENT

DRUGS (2)
  1. LINCOCIN [Suspect]
     Indication: ILL-DEFINED DISORDER
  2. WARFARIN SODIUM [Suspect]
     Indication: ILL-DEFINED DISORDER

REACTIONS (1)
  - INTERNATIONAL NORMALISED RATIO INCREASED [None]
